FAERS Safety Report 8274894-6 (Version None)
Quarter: 2012Q2

REPORT INFORMATION
  Report Type: 
  Country: None (occurrence: None)
  Receive Date: 20120411
  Receipt Date: 20120402
  Transmission Date: 20120825
  Serious: Yes (Hospitalization)
  Sender: FDA-Public Use
  Company Number: US-ASTRAZENECA-2012SE04734

PATIENT
  Age: 64 Year
  Sex: Male
  Weight: 72.6 kg

DRUGS (16)
  1. SEROQUEL [Suspect]
     Indication: BIPOLAR DISORDER
     Dosage: 25 MG AT 6 PM AND 75 MG AT 10 PM
     Route: 048
  2. ASPIRIN [Concomitant]
     Dosage: DAILY
  3. ALLOPURINOL [Concomitant]
  4. CLONAZEPAM [Concomitant]
     Dosage: AT NIGHT
  5. HYOSCINE [Concomitant]
  6. AMBIENT [Concomitant]
  7. CRESTOR [Suspect]
     Indication: BLOOD CHOLESTEROL INCREASED
     Route: 048
  8. GLYBURIDE [Concomitant]
  9. MELOXICAM [Concomitant]
  10. POTASSIUM [Concomitant]
  11. BUMEX [Concomitant]
  12. TYLENOL OTC [Concomitant]
     Dosage: TWO TIMES A DAY
  13. SEROQUEL [Suspect]
     Indication: DEPRESSION
     Dosage: 25 MG AT 6 PM AND 75 MG AT 10 PM
     Route: 048
  14. CYMBALTA [Concomitant]
  15. JANUVIA [Concomitant]
  16. METFORMIN HCL [Concomitant]

REACTIONS (4)
  - BLOOD POTASSIUM INCREASED [None]
  - OFF LABEL USE [None]
  - HYPOTENSION [None]
  - HYPERTENSION [None]
